FAERS Safety Report 7603381-0 (Version None)
Quarter: 2011Q3

REPORT INFORMATION
  Report Type: 
  Country: None (occurrence: None)
  Receive Date: 20110712
  Receipt Date: 20110707
  Transmission Date: 20111222
  Serious: Yes (Death, Hospitalization, Other)
  Sender: FDA-Public Use
  Company Number: PHHY2011US08516

PATIENT
  Sex: Male

DRUGS (1)
  1. EXJADE [Suspect]
     Indication: NEOPLASM
     Dosage: 1000 MG, DAILY
     Route: 048

REACTIONS (4)
  - PANCYTOPENIA [None]
  - MULTIPLE MYELOMA [None]
  - BRONCHITIS [None]
  - RENAL FAILURE ACUTE [None]
